FAERS Safety Report 7254731-9 (Version None)
Quarter: 2011Q1

REPORT INFORMATION
  Report Type: 
  Country: None (occurrence: None)
  Receive Date: 20110129
  Receipt Date: 20100406
  Transmission Date: 20110831
  Serious: No
  Sender: FDA-Public Use
  Company Number: US-ABBOTT-10P-163-0636787-00

PATIENT
  Sex: Female
  Weight: 59.02 kg

DRUGS (7)
  1. HUMIRA [Suspect]
     Dosage: DAY 1
     Dates: start: 20100405, end: 20100405
  2. HUMIRA [Suspect]
     Indication: CROHN'S DISEASE
     Dosage: DAY 2
     Dates: start: 20100406
  3. SINGULAIR [Concomitant]
     Indication: PRODUCT USED FOR UNKNOWN INDICATION
  4. LIALDA [Concomitant]
     Indication: PRODUCT USED FOR UNKNOWN INDICATION
  5. MEVACOR [Concomitant]
     Indication: PRODUCT USED FOR UNKNOWN INDICATION
  6. ALLEGRA [Concomitant]
     Indication: PRODUCT USED FOR UNKNOWN INDICATION
  7. BIRTH CONTROL PILLS [Concomitant]
     Indication: PRODUCT USED FOR UNKNOWN INDICATION

REACTIONS (3)
  - MALAISE [None]
  - NAUSEA [None]
  - INJECTION SITE PAIN [None]
